FAERS Safety Report 4758431-6 (Version None)
Quarter: 2005Q3

REPORT INFORMATION
  Report Type: 
  Country: None (occurrence: None)
  Receive Date: 20050830
  Receipt Date: 20050830
  Transmission Date: 20060218
  Serious: Yes (Hospitalization)
  Sender: FDA-Public Use
  Company Number: None

PATIENT
  Age: 66 Year
  Sex: Female

DRUGS (6)
  1. GLIPIZIDE [Suspect]
     Indication: DIABETES MELLITUS
     Dosage: 10MG  BID PO
     Route: 048
     Dates: start: 20010601, end: 20050623
  2. LEVOFLOXACIN [Suspect]
     Indication: URINARY TRACT INFECTION
     Dosage: 500MG  ONCE  IV
     Route: 042
     Dates: start: 20050623, end: 20050624
  3. CELEXA [Concomitant]
  4. TOPROL-XL [Concomitant]
  5. FOLIC ACID [Concomitant]
  6. METFORMIN [Concomitant]

REACTIONS (7)
  - BLOOD GLUCOSE INCREASED [None]
  - HYPOGLYCAEMIA [None]
  - HYPONATRAEMIA [None]
  - LOSS OF CONSCIOUSNESS [None]
  - MENTAL STATUS CHANGES [None]
  - ORAL INTAKE REDUCED [None]
  - WEIGHT DECREASED [None]
